FAERS Safety Report 6655557-7 (Version None)
Quarter: 2010Q1

REPORT INFORMATION
  Report Type: 
  Country: None (occurrence: None)
  Receive Date: 20100329
  Receipt Date: 20100317
  Transmission Date: 20100710
  Serious: Yes (Death, Other)
  Sender: FDA-Public Use
  Company Number: US-PFIZER INC-2010034850

PATIENT
  Sex: Female

DRUGS (1)
  1. CELEBREX [Suspect]

REACTIONS (1)
  - DEATH [None]
